FAERS Safety Report 5075414-X (Version None)
Quarter: 2006Q3

REPORT INFORMATION
  Report Type: 
  Country: None (occurrence: None)
  Receive Date: 20060804
  Receipt Date: 20060725
  Transmission Date: 20061208
  Serious: Yes (Hospitalization)
  Sender: FDA-Public Use
  Company Number: 2006092904

PATIENT
  Age: 79 Year
  Sex: Male

DRUGS (11)
  1. XANAX [Suspect]
     Indication: DRUG USE FOR UNKNOWN INDICATION
     Dosage: 0.5 MG (0.5 MG, 1 IN 1 AS NECESSARY), ORAL
     Route: 048
     Dates: end: 20060206
  2. ARICEPT [Suspect]
     Indication: DRUG USE FOR UNKNOWN INDICATION
     Dosage: 5 MG (5 MG, 1 IN 1 D),ORAL
  3. MEPRONIZINE (ACEPROMETAZINE, MEPROBAMATE) [Suspect]
     Indication: DRUG USE FOR UNKNOWN INDICATION
     Dosage: (1 IN 1 D), ORAL
     Route: 048
     Dates: end: 20060206
  4. RISPERDAL [Suspect]
     Indication: DRUG USE FOR UNKNOWN INDICATION
     Dosage: (1 IN 1 D), ORAL
     Route: 048
     Dates: end: 20060206
  5. EQUANIL [Suspect]
     Indication: DRUG USE FOR UNKNOWN INDICATION
     Dosage: 800 MG (400 MG, 2 IN 1 D), ORAL
     Route: 048
     Dates: end: 20060209
  6. LOXAPINE SUCCINATE [Suspect]
     Indication: DRUG USE FOR UNKNOWN INDICATION
     Dosage: 45 DOSAGE FORMS (1 IN 1 D), ORAL
     Route: 048
     Dates: end: 20060206
  7. LEVOTHYROXINE SODIUM [Concomitant]
  8. AMIODARONE (AMIODARONE) [Concomitant]
  9. PREVISCAN (FLUINDIONE) [Concomitant]
  10. STABLON (TIANEPTINE) [Concomitant]
  11. PANTOPRAZOLE SODIUM [Concomitant]

REACTIONS (4)
  - FALL [None]
  - LOSS OF CONSCIOUSNESS [None]
  - MALAISE [None]
  - SOMNOLENCE [None]
